FAERS Safety Report 7932832-7 (Version None)
Quarter: 2011Q4

REPORT INFORMATION
  Report Type: 
  Country: None (occurrence: None)
  Receive Date: 20111122
  Receipt Date: 20111120
  Transmission Date: 20120403
  Serious: Yes (Other)
  Sender: FDA-Public Use
  Company Number: US-PFIZER INC-2011283720

PATIENT
  Sex: Male

DRUGS (1)
  1. CHANTIX [Suspect]
     Dosage: UNK

REACTIONS (7)
  - PARANOIA [None]
  - THROAT TIGHTNESS [None]
  - ANXIETY [None]
  - COUGH [None]
  - MIDDLE INSOMNIA [None]
  - DYSPHAGIA [None]
  - DYSPNOEA [None]
